FAERS Safety Report 14402058 (Version 4)
Quarter: 2018Q1

REPORT INFORMATION
  Report Type: Spontaneous
  Country: JP (occurrence: JP)
  Receive Date: 20180117
  Receipt Date: 20180309
  Transmission Date: 20180509
  Serious: Yes (Hospitalization, Other)
  Sender: FDA-Public Use
  Company Number: JP-ABBVIE-18P-087-2225870-00

PATIENT
  Age: 76 Year
  Sex: Male
  Weight: 58.2 kg

DRUGS (13)
  1. LEUPRORELIN ACETATE [Suspect]
     Active Substance: LEUPROLIDE ACETATE
     Indication: PROSTATE CANCER
     Dosage: 22.5 MG, Q6MONTHS
     Route: 058
     Dates: start: 20171113
  2. ESOMEPRAZOLE MAGNESIUM. [Concomitant]
     Active Substance: ESOMEPRAZOLE MAGNESIUM
     Indication: GASTRODUODENAL ULCER
  3. TOCOPHERYL NICOTINATE [Concomitant]
     Active Substance: TOCOPHERYL NICOTINATE, D-.ALPHA.
     Indication: SPINAL COLUMN STENOSIS
     Dosage: 200 MG, BID
     Route: 048
  4. LEUPRORELIN ACETATE [Suspect]
     Active Substance: LEUPROLIDE ACETATE
     Indication: PROSTATE CANCER
     Dosage: 11.25 MG, Q3MONTHS
     Route: 058
     Dates: start: 20170227, end: 20170821
  5. LEUPRORELIN ACETATE [Suspect]
     Active Substance: LEUPROLIDE ACETATE
     Indication: PROSTATE CANCER
  6. MECOBALAMIN [Concomitant]
     Active Substance: METHYLCOBALAMIN
     Indication: SPINAL COLUMN STENOSIS
     Dosage: 500 UG, BID
     Route: 048
  7. LEUPRORELIN ACETATE [Suspect]
     Active Substance: LEUPROLIDE ACETATE
     Indication: PROSTATE CANCER
     Dosage: 3.75 MG, Q4WEEKS
     Route: 058
     Dates: start: 20170130, end: 20170130
  8. ALUMINIUM HYDROXIDE GEL, DRIED, CALCIUM CARBONATE, LIPASE, MAGNESIUM C [Concomitant]
     Indication: CHRONIC GASTRITIS
     Dosage: 1.3 G, BID
     Route: 048
  9. TEPRENONE [Concomitant]
     Active Substance: TEPRENONE
     Indication: CHRONIC GASTRITIS
     Dosage: 50 MG, BID
     Route: 048
  10. LEUPRORELIN ACETATE [Suspect]
     Active Substance: LEUPROLIDE ACETATE
     Indication: PROSTATE CANCER
  11. ESOMEPRAZOLE MAGNESIUM. [Concomitant]
     Active Substance: ESOMEPRAZOLE MAGNESIUM
     Indication: GASTROOESOPHAGEAL REFLUX DISEASE
     Dosage: 20 MG, QD
     Route: 048
     Dates: start: 2015
  12. TEPRENONE [Concomitant]
     Active Substance: TEPRENONE
     Dosage: UNK
     Route: 048
  13. ZOLPIDEM TARTRATE. [Concomitant]
     Active Substance: ZOLPIDEM TARTRATE
     Indication: PRODUCT USED FOR UNKNOWN INDICATION
     Dosage: UNK
     Route: 048

REACTIONS (2)
  - Hot flush [Unknown]
  - Interstitial lung disease [Recovering/Resolving]

NARRATIVE: CASE EVENT DATE: 20180109
